FAERS Safety Report 4484850-1 (Version None)
Quarter: 2004Q4

REPORT INFORMATION
  Report Type: 
  Country: None (occurrence: None)
  Receive Date: 20041025
  Receipt Date: 20041020
  Transmission Date: 20050328
  Serious: Yes (Life-Threatening, Hospitalization)
  Sender: FDA-Public Use
  Company Number: US-MERCK-0410USA03151

PATIENT
  Age: 68 Year
  Sex: Female

DRUGS (7)
  1. VIOXX [Suspect]
     Indication: FIBROMYALGIA
     Route: 048
     Dates: start: 20030101, end: 20041001
  2. [THERAPY UNSPECIFIED] [Concomitant]
     Route: 065
  3. PRINIVIL [Concomitant]
     Route: 065
  4. PREVACID [Concomitant]
     Route: 065
  5. LASIX [Concomitant]
     Route: 065
  6. DARVOCET-N 100 [Concomitant]
     Route: 065
  7. TRIAZOLAM [Concomitant]
     Route: 065

REACTIONS (2)
  - ARTERIAL OCCLUSIVE DISEASE [None]
  - DYSPNOEA [None]
